FAERS Safety Report 15653192 (Version 1)
Quarter: 2018Q4

REPORT INFORMATION
  Report Type: Spontaneous
  Country: US (occurrence: US)
  Receive Date: 20181123
  Receipt Date: 20181123
  Transmission Date: 20190205
  Serious: No
  Sender: FDA-Public Use
  Company Number: US-NOVOPROD-624095

PATIENT
  Sex: Female

DRUGS (1)
  1. NOVOLOG [Suspect]
     Active Substance: INSULIN ASPART
     Indication: PRODUCT USED FOR UNKNOWN INDICATION
     Dosage: UNK
     Route: 058
     Dates: end: 201806

REACTIONS (6)
  - Asthenia [Unknown]
  - Hepatic pain [Unknown]
  - Abdominal pain upper [Unknown]
  - Hypersomnia [Unknown]
  - Renal pain [Unknown]
  - Chest pain [Unknown]
